FAERS Safety Report 4397513-8 (Version None)
Quarter: 2004Q2

REPORT INFORMATION
  Report Type: 
  Country: None (occurrence: None)
  Receive Date: 20040621
  Receipt Date: 20031219
  Transmission Date: 20050107
  Serious: Yes (Other)
  Sender: FDA-Public Use
  Company Number: USA-2003-0012369

PATIENT
  Sex: Male

DRUGS (2)
  1. OXYCONTIN [Suspect]
     Dosage: 20 MG, Q12H; ORAL
     Route: 048
  2. DURAGESIC [Suspect]
     Dosage: UNK UNK, UNK; UNKNOWN
     Route: 065

REACTIONS (4)
  - DRUG ABUSER [None]
  - DRUG DEPENDENCE [None]
  - DRUG INEFFECTIVE [None]
  - OVERDOSE [None]
